FAERS Safety Report 9161079 (Version 4)
Quarter: 2014Q2

REPORT INFORMATION
  Report Type: Report from Study
  Country: US (occurrence: US)
  Receive Date: 20130313
  Receipt Date: 20140521
  Transmission Date: 20141212
  Serious: Yes (Hospitalization)
  Sender: FDA-Public Use
  Company Number: US-VERTEX PHARMACEUTICALS INC.-2013-003451

PATIENT
  Age: 7 Year
  Sex: Male

DRUGS (3)
  1. VX-770 [Suspect]
     Indication: CYSTIC FIBROSIS
     Dosage: 150 MG, BID
     Dates: start: 20120306
  2. VX-770 [Suspect]
     Dosage: 150 MG, QD
  3. CREON [Suspect]

REACTIONS (5)
  - Colonic lavage [Not Recovered/Not Resolved]
  - Constipation [Not Recovered/Not Resolved]
  - Bronchial secretion retention [Unknown]
  - Dysphagia [Not Recovered/Not Resolved]
  - Abdominal pain [Not Recovered/Not Resolved]
